FAERS Safety Report 22108991 (Version 23)
Quarter: 2023Q4

REPORT INFORMATION
  Report Type: Spontaneous
  Country: GB (occurrence: GB)
  Receive Date: 20230317
  Receipt Date: 20231112
  Transmission Date: 20240109
  Serious: Yes (Hospitalization, Other)
  Sender: FDA-Public Use
  Company Number: GB-ABBVIE-4334866

PATIENT
  Age: 34 Year
  Sex: Female

DRUGS (135)
  1. REMICADE [Suspect]
     Active Substance: INFLIXIMAB
     Indication: Crohn^s disease
     Dosage: UNKNOWN
     Route: 042
  2. REMICADE [Suspect]
     Active Substance: INFLIXIMAB
     Indication: Product used for unknown indication
     Dosage: UNK, OTHER
     Route: 042
  3. REMICADE [Suspect]
     Active Substance: INFLIXIMAB
     Dosage: UNK, OTHER
     Route: 042
  4. REMICADE [Suspect]
     Active Substance: INFLIXIMAB
     Dosage: UNK
     Route: 065
  5. REMICADE [Suspect]
     Active Substance: INFLIXIMAB
     Dosage: UNK, OTHER
     Route: 050
  6. REMICADE [Suspect]
     Active Substance: INFLIXIMAB
     Dosage: UNK, OTHER
     Route: 042
  7. REMICADE [Suspect]
     Active Substance: INFLIXIMAB
     Dosage: UNK, OTHER
     Route: 042
  8. REMICADE [Suspect]
     Active Substance: INFLIXIMAB
     Dosage: UNK
     Route: 050
  9. REMICADE [Suspect]
     Active Substance: INFLIXIMAB
     Dosage: UNK, OTHER
     Route: 042
  10. REMICADE [Suspect]
     Active Substance: INFLIXIMAB
     Dosage: UNK, OTHER
     Route: 042
  11. REMICADE [Suspect]
     Active Substance: INFLIXIMAB
     Dosage: UNK
     Route: 065
  12. REMICADE [Suspect]
     Active Substance: INFLIXIMAB
     Dosage: UNK
     Route: 065
  13. REMICADE [Suspect]
     Active Substance: INFLIXIMAB
     Dosage: UNK
     Route: 065
  14. REMICADE [Suspect]
     Active Substance: INFLIXIMAB
     Dosage: UNK
     Route: 050
  15. REMICADE [Suspect]
     Active Substance: INFLIXIMAB
     Dosage: UNK
     Route: 050
  16. REMICADE [Suspect]
     Active Substance: INFLIXIMAB
     Dosage: UNK
     Route: 050
  17. REMICADE [Suspect]
     Active Substance: INFLIXIMAB
     Dosage: UNK
     Route: 065
  18. REMICADE [Suspect]
     Active Substance: INFLIXIMAB
     Dosage: UNK
     Route: 065
  19. REMICADE [Suspect]
     Active Substance: INFLIXIMAB
     Dosage: UNK
     Route: 065
  20. REMICADE [Suspect]
     Active Substance: INFLIXIMAB
     Dosage: UNK, OTHER
     Route: 042
  21. REMICADE [Suspect]
     Active Substance: INFLIXIMAB
     Dosage: UNK, OTHER
     Route: 042
  22. REMICADE [Suspect]
     Active Substance: INFLIXIMAB
     Dosage: UNK, OTHER
     Route: 042
  23. REMICADE [Suspect]
     Active Substance: INFLIXIMAB
     Dosage: UNK, OTHER
     Route: 042
  24. REMICADE [Suspect]
     Active Substance: INFLIXIMAB
     Dosage: UNK
     Route: 065
  25. VEDOLIZUMAB [Suspect]
     Active Substance: VEDOLIZUMAB
     Indication: Crohn^s disease
     Dosage: SOLUTION FOR INJECTION
     Route: 065
  26. VEDOLIZUMAB [Suspect]
     Active Substance: VEDOLIZUMAB
     Indication: Product used for unknown indication
     Dosage: SOLUTION FOR INJECTION
     Route: 065
  27. VEDOLIZUMAB [Suspect]
     Active Substance: VEDOLIZUMAB
     Dosage: SOLUTION FOR INJECTION
     Route: 065
  28. VEDOLIZUMAB [Suspect]
     Active Substance: VEDOLIZUMAB
     Dosage: SOLUTION FOR INJECTION
     Route: 065
  29. VEDOLIZUMAB [Suspect]
     Active Substance: VEDOLIZUMAB
     Dosage: SOLUTION FOR INJECTION
     Route: 065
  30. VEDOLIZUMAB [Suspect]
     Active Substance: VEDOLIZUMAB
     Dosage: SOLUTION FOR INJECTION
     Route: 065
  31. VEDOLIZUMAB [Suspect]
     Active Substance: VEDOLIZUMAB
     Dosage: UNK OTHER
     Route: 065
  32. VEDOLIZUMAB [Suspect]
     Active Substance: VEDOLIZUMAB
     Dosage: UNK OTHER
     Route: 065
  33. VEDOLIZUMAB [Suspect]
     Active Substance: VEDOLIZUMAB
     Dosage: UNK OTHER
     Route: 065
  34. VEDOLIZUMAB [Suspect]
     Active Substance: VEDOLIZUMAB
     Dosage: SOLUTION FOR INJECTION
     Route: 065
  35. VEDOLIZUMAB [Suspect]
     Active Substance: VEDOLIZUMAB
     Dosage: SOLUTION FOR INJECTION
     Route: 065
  36. VEDOLIZUMAB [Suspect]
     Active Substance: VEDOLIZUMAB
     Dosage: SOLUTION FOR INJECTION
     Route: 065
  37. VEDOLIZUMAB [Suspect]
     Active Substance: VEDOLIZUMAB
     Dosage: SOLUTION FOR INJECTION
     Route: 065
  38. VEDOLIZUMAB [Suspect]
     Active Substance: VEDOLIZUMAB
     Dosage: SOLUTION FOR INJECTION
     Route: 065
  39. VEDOLIZUMAB [Suspect]
     Active Substance: VEDOLIZUMAB
     Dosage: SOLUTION FOR INJECTION
     Route: 065
  40. VEDOLIZUMAB [Suspect]
     Active Substance: VEDOLIZUMAB
     Dosage: SOLUTION FOR INJECTION
     Route: 065
  41. VEDOLIZUMAB [Suspect]
     Active Substance: VEDOLIZUMAB
     Dosage: SOLUTION FOR INJECTION
     Route: 065
  42. VEDOLIZUMAB [Suspect]
     Active Substance: VEDOLIZUMAB
     Dosage: SOLUTION FOR INJECTION
     Route: 065
  43. VEDOLIZUMAB [Suspect]
     Active Substance: VEDOLIZUMAB
     Dosage: SOLUTION FOR INJECTION
     Route: 065
  44. VEDOLIZUMAB [Suspect]
     Active Substance: VEDOLIZUMAB
     Dosage: SOLUTION FOR INJECTION
     Route: 065
  45. VEDOLIZUMAB [Suspect]
     Active Substance: VEDOLIZUMAB
     Dosage: SOLUTION FOR INJECTION
     Route: 065
  46. VEDOLIZUMAB [Suspect]
     Active Substance: VEDOLIZUMAB
     Dosage: SOLUTION FOR INJECTION
     Route: 065
  47. VEDOLIZUMAB [Suspect]
     Active Substance: VEDOLIZUMAB
     Dosage: SOLUTION FOR INJECTION
     Route: 065
  48. VEDOLIZUMAB [Suspect]
     Active Substance: VEDOLIZUMAB
     Dosage: SOLUTION FOR INJECTION
     Route: 065
  49. VEDOLIZUMAB [Suspect]
     Active Substance: VEDOLIZUMAB
     Dosage: SOLUTION FOR INJECTION
     Route: 065
  50. VEDOLIZUMAB [Suspect]
     Active Substance: VEDOLIZUMAB
     Dosage: SOLUTION FOR INJECTION
     Route: 065
  51. VEDOLIZUMAB [Suspect]
     Active Substance: VEDOLIZUMAB
     Dosage: SOLUTION FOR INJECTION
     Route: 065
  52. RIFAXIMIN [Suspect]
     Active Substance: RIFAXIMIN
     Indication: Product used for unknown indication
     Dosage: UNK UNK, UNK
     Route: 050
  53. RIFAXIMIN [Suspect]
     Active Substance: RIFAXIMIN
     Dosage: UNK
     Route: 050
  54. RIFAXIMIN [Suspect]
     Active Substance: RIFAXIMIN
     Dosage: FILM COATED TABLET
     Route: 050
  55. RIFAXIMIN [Suspect]
     Active Substance: RIFAXIMIN
     Dosage: FILM COATED TABLET
     Route: 050
  56. RIFAXIMIN [Suspect]
     Active Substance: RIFAXIMIN
     Dosage: FILM COATED TABLET
     Route: 050
  57. METHOTREXATE SODIUM [Suspect]
     Active Substance: METHOTREXATE SODIUM
     Indication: Product used for unknown indication
     Dosage: UNK UNK, UNK
     Route: 050
  58. METHOTREXATE SODIUM [Suspect]
     Active Substance: METHOTREXATE SODIUM
     Dosage: UNK
     Route: 050
  59. METHOTREXATE SODIUM [Suspect]
     Active Substance: METHOTREXATE SODIUM
     Route: 050
  60. METHOTREXATE SODIUM [Suspect]
     Active Substance: METHOTREXATE SODIUM
     Route: 050
  61. METHOTREXATE SODIUM [Suspect]
     Active Substance: METHOTREXATE SODIUM
     Route: 050
  62. METHOTREXATE SODIUM [Suspect]
     Active Substance: METHOTREXATE SODIUM
     Route: 050
  63. METHOTREXATE SODIUM [Suspect]
     Active Substance: METHOTREXATE SODIUM
     Route: 050
  64. METHOTREXATE SODIUM [Suspect]
     Active Substance: METHOTREXATE SODIUM
     Route: 050
  65. METHOTREXATE SODIUM [Suspect]
     Active Substance: METHOTREXATE SODIUM
     Route: 050
  66. METHOTREXATE SODIUM [Suspect]
     Active Substance: METHOTREXATE SODIUM
     Route: 050
  67. METHOTREXATE SODIUM [Suspect]
     Active Substance: METHOTREXATE SODIUM
     Route: 050
  68. METHOTREXATE SODIUM [Suspect]
     Active Substance: METHOTREXATE SODIUM
     Route: 050
  69. METHOTREXATE SODIUM [Suspect]
     Active Substance: METHOTREXATE SODIUM
     Route: 050
  70. ADALIMUMAB [Suspect]
     Active Substance: ADALIMUMAB\ISOPROPYL ALCOHOL
     Indication: Crohn^s disease
     Dosage: UNK (1 UNIT, SINGLE DOSE PEN, UNIT EQUAL TO SURE CLICK)
     Route: 050
  71. ADALIMUMAB [Suspect]
     Active Substance: ADALIMUMAB\ISOPROPYL ALCOHOL
     Dosage: 1 UNIT?SOLUTION FOR INJECTION
     Route: 050
  72. ADALIMUMAB [Suspect]
     Active Substance: ADALIMUMAB\ISOPROPYL ALCOHOL
     Route: 050
  73. ADALIMUMAB [Suspect]
     Active Substance: ADALIMUMAB\ISOPROPYL ALCOHOL
     Route: 050
  74. ADALIMUMAB [Suspect]
     Active Substance: ADALIMUMAB\ISOPROPYL ALCOHOL
     Route: 050
  75. ADALIMUMAB [Suspect]
     Active Substance: ADALIMUMAB\ISOPROPYL ALCOHOL
     Route: 050
  76. ADALIMUMAB [Suspect]
     Active Substance: ADALIMUMAB\ISOPROPYL ALCOHOL
     Route: 050
  77. ADALIMUMAB [Suspect]
     Active Substance: ADALIMUMAB\ISOPROPYL ALCOHOL
     Route: 050
  78. ADALIMUMAB [Suspect]
     Active Substance: ADALIMUMAB\ISOPROPYL ALCOHOL
     Route: 050
  79. ADALIMUMAB [Suspect]
     Active Substance: ADALIMUMAB\ISOPROPYL ALCOHOL
     Route: 050
  80. ADALIMUMAB [Suspect]
     Active Substance: ADALIMUMAB\ISOPROPYL ALCOHOL
     Route: 050
  81. ADALIMUMAB [Suspect]
     Active Substance: ADALIMUMAB\ISOPROPYL ALCOHOL
     Dosage: UNK (1 UNIT, SINGLE DOSE PEN, UNIT EQUAL TO SURE CLICK)
     Route: 050
  82. ADALIMUMAB [Suspect]
     Active Substance: ADALIMUMAB\ISOPROPYL ALCOHOL
     Dosage: UNK (1 UNIT, SINGLE DOSE PEN, UNIT EQUAL TO SURE CLICK)
     Route: 050
  83. ADALIMUMAB [Suspect]
     Active Substance: ADALIMUMAB\ISOPROPYL ALCOHOL
     Dosage: UNK (1 UNIT, SINGLE DOSE PEN, UNIT EQUAL TO SURE CLICK)
     Route: 050
  84. ADALIMUMAB [Suspect]
     Active Substance: ADALIMUMAB\ISOPROPYL ALCOHOL
     Dosage: UNK (1 UNIT, SINGLE DOSE PEN, UNIT EQUAL TO SURE CLICK)
     Route: 050
  85. ADALIMUMAB [Suspect]
     Active Substance: ADALIMUMAB\ISOPROPYL ALCOHOL
     Dosage: UNK (1 UNIT, SINGLE DOSE PEN, UNIT EQUAL TO SURE CLICK)
     Route: 050
  86. ADALIMUMAB [Suspect]
     Active Substance: ADALIMUMAB\ISOPROPYL ALCOHOL
     Dosage: UNK (1 UNIT, SINGLE DOSE PEN, UNIT EQUAL TO SURE CLICK)
     Route: 050
  87. RIFAXIMIN [Suspect]
     Active Substance: RIFAXIMIN
     Indication: Product used for unknown indication
     Dosage: UNKNOWN
     Route: 050
  88. RIFAXIMIN [Suspect]
     Active Substance: RIFAXIMIN
     Dosage: UNK
     Route: 050
  89. RIFAXIMIN [Suspect]
     Active Substance: RIFAXIMIN
     Dosage: UNK
     Route: 050
  90. RIFAXIMIN [Suspect]
     Active Substance: RIFAXIMIN
     Dosage: UNK
     Route: 050
  91. RIFAXIMIN [Suspect]
     Active Substance: RIFAXIMIN
     Dosage: UNK
     Route: 050
  92. RIFAXIMIN [Suspect]
     Active Substance: RIFAXIMIN
     Dosage: UNK
     Route: 050
  93. RIFAXIMIN [Suspect]
     Active Substance: RIFAXIMIN
     Dosage: UNKNOWN
     Route: 050
  94. RIFAXIMIN [Suspect]
     Active Substance: RIFAXIMIN
     Dosage: UNKNOWN
     Route: 050
  95. RIFAXIMIN [Suspect]
     Active Substance: RIFAXIMIN
     Dosage: UNKNOWN
     Route: 050
  96. RIFAXIMIN [Suspect]
     Active Substance: RIFAXIMIN
     Dosage: UNKNOWN
     Route: 050
  97. RIFAXIMIN [Suspect]
     Active Substance: RIFAXIMIN
     Dosage: UNKNOWN
     Route: 050
  98. RIFAXIMIN [Suspect]
     Active Substance: RIFAXIMIN
     Dosage: UNKNOWN
     Route: 050
  99. RIFAXIMIN [Suspect]
     Active Substance: RIFAXIMIN
     Dosage: UNKNOWN
     Route: 050
  100. RIFAXIMIN [Suspect]
     Active Substance: RIFAXIMIN
     Dosage: UNKNOWN
     Route: 050
  101. RIFAXIMIN [Suspect]
     Active Substance: RIFAXIMIN
     Dosage: UNKNOWN
     Route: 050
  102. RIFAXIMIN [Suspect]
     Active Substance: RIFAXIMIN
     Dosage: UNKNOWN
     Route: 050
  103. RIFAXIMIN [Suspect]
     Active Substance: RIFAXIMIN
     Dosage: UNKNOWN
     Route: 050
  104. RIFAXIMIN [Suspect]
     Active Substance: RIFAXIMIN
     Dosage: UNKNOWN
     Route: 050
  105. RIFAXIMIN [Suspect]
     Active Substance: RIFAXIMIN
     Dosage: UNKNOWN
     Route: 050
  106. RIFAXIMIN [Suspect]
     Active Substance: RIFAXIMIN
     Dosage: UNKNOWN
     Route: 050
  107. RIFAXIMIN [Suspect]
     Active Substance: RIFAXIMIN
     Dosage: UNKNOWN
     Route: 050
  108. RIFAXIMIN [Suspect]
     Active Substance: RIFAXIMIN
     Dosage: UNKNOWN
     Route: 050
  109. RIFAXIMIN [Suspect]
     Active Substance: RIFAXIMIN
     Dosage: UNKNOWN
     Route: 050
  110. RIFAXIMIN [Suspect]
     Active Substance: RIFAXIMIN
     Dosage: UNKNOWN
     Route: 050
  111. RIFAXIMIN [Suspect]
     Active Substance: RIFAXIMIN
     Dosage: UNKNOWN
     Route: 050
  112. METHOTREXATE [Suspect]
     Active Substance: METHOTREXATE
     Indication: Product used for unknown indication
     Route: 065
  113. ENTYVIO [Suspect]
     Active Substance: VEDOLIZUMAB
     Indication: Crohn^s disease
     Dosage: UNKNOWN, UNK, SINGLE DOSE PEN
     Route: 065
  114. ENTYVIO [Suspect]
     Active Substance: VEDOLIZUMAB
     Indication: Crohn^s disease
     Dosage: UNKNOWN, UNK, SINGLE DOSE PEN
     Route: 065
  115. ENTYVIO [Suspect]
     Active Substance: VEDOLIZUMAB
     Dosage: UNKNOWN, UNK, SINGLE DOSE PEN
     Route: 065
  116. ENTYVIO [Suspect]
     Active Substance: VEDOLIZUMAB
     Dosage: UNKNOWN, UNK, SINGLE DOSE PEN
     Route: 065
  117. ENTYVIO [Suspect]
     Active Substance: VEDOLIZUMAB
     Dosage: UNKNOWN, UNK, SINGLE DOSE PEN
     Route: 065
  118. ENTYVIO [Suspect]
     Active Substance: VEDOLIZUMAB
     Dosage: UNKNOWN, UNK, SINGLE DOSE PEN
     Route: 065
  119. ENTYVIO [Suspect]
     Active Substance: VEDOLIZUMAB
     Dosage: UNKNOWN, UNK, SINGLE DOSE PEN
     Route: 065
  120. ENTYVIO [Suspect]
     Active Substance: VEDOLIZUMAB
     Dosage: UNKNOWN, UNK, SINGLE DOSE PEN
     Route: 065
  121. ENTYVIO [Suspect]
     Active Substance: VEDOLIZUMAB
     Dosage: UNKNOWN, UNK, SINGLE DOSE PEN
     Route: 065
  122. ENTYVIO [Suspect]
     Active Substance: VEDOLIZUMAB
     Dosage: UNKNOWN, UNK, SINGLE DOSE PEN
     Route: 065
  123. ENTYVIO [Suspect]
     Active Substance: VEDOLIZUMAB
     Dosage: UNKNOWN, UNK, SINGLE DOSE PEN
     Route: 065
  124. ENTYVIO [Suspect]
     Active Substance: VEDOLIZUMAB
     Dosage: UNKNOWN, UNK, SINGLE DOSE PEN
     Route: 065
  125. INFLIXIMAB [Suspect]
     Active Substance: INFLIXIMAB
     Indication: Crohn^s disease
     Dosage: UNK
     Route: 050
  126. INFLIXIMAB [Suspect]
     Active Substance: INFLIXIMAB
     Dosage: UNK
     Route: 050
  127. INFLIXIMAB [Suspect]
     Active Substance: INFLIXIMAB
     Dosage: UNK
     Route: 050
  128. INFLIXIMAB [Suspect]
     Active Substance: INFLIXIMAB
     Dosage: UNK
     Route: 050
  129. INFLIXIMAB [Suspect]
     Active Substance: INFLIXIMAB
     Dosage: UNK
     Route: 050
  130. INFLIXIMAB [Suspect]
     Active Substance: INFLIXIMAB
     Dosage: UNK
     Route: 050
  131. INFLIXIMAB [Suspect]
     Active Substance: INFLIXIMAB
     Dosage: UNK
     Route: 050
  132. USTEKINUMAB [Concomitant]
     Active Substance: USTEKINUMAB
     Indication: Product used for unknown indication
     Route: 065
     Dates: start: 20211112, end: 2022
  133. USTEKINUMAB [Concomitant]
     Active Substance: USTEKINUMAB
     Route: 065
     Dates: start: 20211112, end: 2022
  134. HYRIMOZ [Concomitant]
     Active Substance: ADALIMUMAB-ADAZ
     Indication: Product used for unknown indication
     Dosage: UNK, SENSO-READ PEN
     Route: 050
  135. HYRIMOZ [Concomitant]
     Active Substance: ADALIMUMAB-ADAZ
     Dosage: UNK, SENSO-READ PEN
     Route: 050

REACTIONS (11)
  - Small intestinal obstruction [Unknown]
  - Gastrointestinal bacterial overgrowth [Unknown]
  - Pneumonia [Unknown]
  - Quality of life decreased [Unknown]
  - Frequent bowel movements [Unknown]
  - Nerve injury [Unknown]
  - Pancreatitis [Unknown]
  - Incontinence [Unknown]
  - Crohn^s disease [Unknown]
  - Drug specific antibody [Unknown]
  - Drug ineffective [Unknown]

NARRATIVE: CASE EVENT DATE: 20220101
